FAERS Safety Report 21561223 (Version 1)
Quarter: 2022Q4

REPORT INFORMATION
  Report Type: Spontaneous
  Country: None (occurrence: US)
  Receive Date: 20221107
  Receipt Date: 20221107
  Transmission Date: 20230113
  Serious: No
  Sender: FDA-Public Use
  Company Number: US-Bio Products Laboratory Ltd-2134591

PATIENT
  Sex: Male

DRUGS (1)
  1. GAMMAPLEX [Suspect]
     Active Substance: HUMAN IMMUNOGLOBULIN G
     Indication: Peripheral motor neuropathy
     Route: 042

REACTIONS (2)
  - Muscle twitching [Unknown]
  - Off label use [Unknown]

NARRATIVE: CASE EVENT DATE: 20220818
